FAERS Safety Report 9513480 (Version 2)
Quarter: 2015Q3

REPORT INFORMATION
  Report Type: Spontaneous
  Country: US (occurrence: US)
  Receive Date: 20130910
  Receipt Date: 20150904
  Transmission Date: 20151125
  Serious: Yes (Hospitalization, Other)
  Sender: FDA-Public Use
  Company Number: US-TARO-2013P1004857

PATIENT
  Age: 77 Year
  Sex: Female
  Weight: 62.6 kg

DRUGS (6)
  1. WARFARIN SODIUM TABLETS USP 5MG [Suspect]
     Active Substance: WARFARIN SODIUM
     Dosage: UNK
     Dates: start: 20130418
  2. BABY ASPIRIN [Concomitant]
     Active Substance: ASPIRIN
     Dosage: 81 MG
     Dates: end: 20130412
  3. VITAMIN D [Concomitant]
     Active Substance: CHOLECALCIFEROL
  4. WARFARIN SODIUM TABLETS USP 5MG [Suspect]
     Active Substance: WARFARIN SODIUM
     Indication: PULMONARY EMBOLISM
     Dosage: 10 MG, 6X/WEEK
     Route: 048
     Dates: start: 2005, end: 20130412
  5. CALCIUM + VITAMIN D [Concomitant]
     Active Substance: CALCIUM\VITAMIN D
  6. WARFARIN SODIUM TABLETS USP 5MG [Suspect]
     Active Substance: WARFARIN SODIUM
     Dosage: 7.5 MG, 1X/WEEK
     Route: 048
     Dates: start: 2005, end: 20130412

REACTIONS (1)
  - Necrosis [Recovered/Resolved]

NARRATIVE: CASE EVENT DATE: 20130325
